FAERS Safety Report 5104665-0 (Version None)
Quarter: 2006Q3

REPORT INFORMATION
  Report Type: 
  Country: None (occurrence: None)
  Receive Date: 20060911
  Receipt Date: 20060822
  Transmission Date: 20061208
  Serious: Yes (Other)
  Sender: FDA-Public Use
  Company Number: DE200608004721

PATIENT
  Age: 9 Year
  Sex: Male
  Weight: 33 kg

DRUGS (1)
  1. STRATTERA [Suspect]
     Indication: ATTENTION DEFICIT/HYPERACTIVITY DISORDER
     Dosage: 40 MG, DAILY (1/D), ORAL
     Route: 048
     Dates: start: 20050901, end: 20060501

REACTIONS (4)
  - ANXIETY [None]
  - DEPRESSION [None]
  - STRESS [None]
  - SUICIDE ATTEMPT [None]
